FAERS Safety Report 7166656-8 (Version None)
Quarter: 2010Q4

REPORT INFORMATION
  Report Type: 
  Country: None (occurrence: None)
  Receive Date: 20101203
  Receipt Date: 20101119
  Transmission Date: 20110411
  Serious: Yes (Life-Threatening)
  Sender: FDA-Public Use
  Company Number: CA-1184163

PATIENT
  Age: 32 Year
  Sex: Female

DRUGS (1)
  1. FLUORESCITE(FLUORESCEIN SODIUM) INJECTION LOT# IM1006B SOLUTION FOR IN [Suspect]
     Dosage: INTRAVENOUS BOLUS
     Route: 040
     Dates: start: 20101118, end: 20101118

REACTIONS (4)
  - DYSPNOEA [None]
  - EYE SWELLING [None]
  - FEELING HOT [None]
  - SNEEZING [None]
